FAERS Safety Report 20578040 (Version 1)
Quarter: 2022Q1

REPORT INFORMATION
  Report Type: Spontaneous
  Country: BR (occurrence: BR)
  Receive Date: 20220310
  Receipt Date: 20220310
  Transmission Date: 20220423
  Serious: Yes (Hospitalization, Other)
  Sender: FDA-Public Use
  Company Number: BR-FERRINGPH-2022FE01035

PATIENT
  Age: 28 Year
  Sex: Male

DRUGS (2)
  1. DDAVP [Suspect]
     Active Substance: DESMOPRESSIN ACETATE
     Indication: Diabetes insipidus
     Dosage: 0.1 MG
     Route: 065
     Dates: start: 2020
  2. DDAVP [Suspect]
     Active Substance: DESMOPRESSIN ACETATE
     Indication: Diabetes insipidus
     Dosage: UNK
     Route: 065
     Dates: start: 2020

REACTIONS (5)
  - Blood sodium increased [Recovered/Resolved]
  - Metastasis [Recovered/Resolved]
  - Recalled product administered [Unknown]
  - Poor quality product administered [Unknown]
  - Drug ineffective [Recovered/Resolved]

NARRATIVE: CASE EVENT DATE: 20200101
